FAERS Safety Report 16642060 (Version 1)
Quarter: 2019Q3

REPORT INFORMATION
  Report Type: Spontaneous
  Country: US (occurrence: US)
  Receive Date: 20190614
  Receipt Date: 20190614
  Transmission Date: 20191004
  Serious: No
  Sender: FDA-Public Use
  Company Number: None

PATIENT
  Age: 46 Year
  Sex: Female

DRUGS (2)
  1. LETROZOLE TAB 2.5MG [Suspect]
     Active Substance: LETROZOLE
     Dates: start: 20190108, end: 20190426
  2. KISQALI [Concomitant]
     Active Substance: RIBOCICLIB

REACTIONS (1)
  - Palliative care [None]

NARRATIVE: CASE EVENT DATE: 20190614
